FAERS Safety Report 7207990-2 (Version None)
Quarter: 2011Q1

REPORT INFORMATION
  Report Type: 
  Country: None (occurrence: None)
  Receive Date: 20110104
  Receipt Date: 20101226
  Transmission Date: 20110831
  Serious: Yes (Hospitalization)
  Sender: FDA-Public Use
  Company Number: GB-NOVOPROD-320695

PATIENT
  Sex: Female

DRUGS (1)
  1. NOVOMIX 30 [Suspect]
     Indication: TYPE 2 DIABETES MELLITUS
     Dosage: 64 IU, QD (46+18)
     Route: 058

REACTIONS (2)
  - BLOOD GLUCOSE INCREASED [None]
  - FALL [None]
